FAERS Safety Report 9819200 (Version 2)
Quarter: 2014Q1

REPORT INFORMATION
  Report Type: Spontaneous
  Country: IT (occurrence: IT)
  Receive Date: 20140115
  Receipt Date: 20140320
  Transmission Date: 20141002
  Serious: Yes (Hospitalization)
  Sender: FDA-Public Use
  Company Number: IT-BAYER-2014-005175

PATIENT
  Age: 79 Year
  Sex: Male

DRUGS (2)
  1. NEXAVAR [Suspect]
     Indication: HEPATIC NEOPLASM
     Dosage: DAILY DOSE 400 MG
     Route: 048
     Dates: start: 20120926, end: 20130115
  2. NIFEDIPINE [Concomitant]
     Dosage: DAILY DOSE 30 MG
     Route: 048

REACTIONS (4)
  - Hepatic encephalopathy [Recovered/Resolved]
  - Hepatic failure [Recovered/Resolved]
  - Ascites [Recovered/Resolved]
  - Hypoalbuminaemia [Recovered/Resolved]
